FAERS Safety Report 18370012 (Version 1)
Quarter: 2020Q4

REPORT INFORMATION
  Report Type: Report from Study
  Country: US (occurrence: US)
  Receive Date: 20201012
  Receipt Date: 20201012
  Transmission Date: 20210114
  Serious: Yes (Other)
  Sender: FDA-Public Use
  Company Number: US-BEH-2020123545

PATIENT

DRUGS (2)
  1. RIASTAP [Suspect]
     Active Substance: FIBRINOGEN HUMAN
     Indication: CEREBRAL HAEMORRHAGE
     Dosage: 4356 MILLIGRAM, TOT
     Route: 065
  2. RIASTAP [Suspect]
     Active Substance: FIBRINOGEN HUMAN
     Indication: HYPOFIBRINOGENAEMIA

REACTIONS (3)
  - No adverse event [Unknown]
  - Thrombophlebitis superficial [Unknown]
  - Product use in unapproved indication [Unknown]
